FAERS Safety Report 6087127-6 (Version None)
Quarter: 2009Q1

REPORT INFORMATION
  Report Type: 
  Country: None (occurrence: None)
  Receive Date: 20090211
  Receipt Date: 20090130
  Transmission Date: 20090719
  Serious: Yes (Hospitalization)
  Sender: FDA-Public Use
  Company Number: CHPA2009US01374

PATIENT
  Age: 80 Year
  Sex: Female

DRUGS (8)
  1. TAVIST ALLERGY/SINUS/HEADACHE CAPLETS (NCH)(CLEMASTINE FUMARATE, PSEUD [Suspect]
     Indication: NASAL DECONGESTION THERAPY
     Dosage: ORAL
     Route: 048
     Dates: start: 19970101, end: 20020101
  2. PHENYLPROPANOLAMINE HCL [Suspect]
     Indication: WEIGHT CONTROL
  3. LIBRAX (CHLORDIAZEPOXIDE, CLIDINIUM BROMIDE) [Concomitant]
  4. DRUG THERAPY NOS (DRUG THERAPY NOS) [Concomitant]
  5. SOMA [Concomitant]
  6. MORPHINE [Concomitant]
  7. DRUG THERAPY NOS (DRUG THERAPY NOS) [Concomitant]
  8. ANTIHYPERTENSIVES (NO INGREDIENTS/SUBSTANCES) [Concomitant]

REACTIONS (4)
  - GASTRIC ULCER HAEMORRHAGE [None]
  - HEADACHE [None]
  - INTENTIONAL DRUG MISUSE [None]
  - PAIN [None]
